FAERS Safety Report 25601960 (Version 1)
Quarter: 2025Q3

REPORT INFORMATION
  Report Type: Spontaneous
  Country: GB (occurrence: GB)
  Receive Date: 20250724
  Receipt Date: 20250724
  Transmission Date: 20251020
  Serious: Yes (Life-Threatening, Hospitalization, Other)
  Sender: ELI LILLY AND COMPANY
  Company Number: None

PATIENT
  Sex: Female
  Weight: 130 kg

DRUGS (2)
  1. MOUNJARO [Suspect]
     Active Substance: TIRZEPATIDE
     Indication: Weight control
     Route: 065
     Dates: start: 20250617, end: 20250712
  2. CHLORTETRACYCLINE HYDROCHLORIDE;CLOBETASONE B [Concomitant]
     Indication: Vulvovaginal mycotic infection
     Dates: start: 20250709, end: 20250712

REACTIONS (3)
  - Necrotising fasciitis [Recovering/Resolving]
  - Septic shock [Unknown]
  - Wrong technique in product usage process [Unknown]

NARRATIVE: CASE EVENT DATE: 20250712
